FAERS Safety Report 9667694 (Version 1)
Quarter: 2013Q4

REPORT INFORMATION
  Report Type: Spontaneous
  Country: US (occurrence: US)
  Receive Date: 20131101
  Receipt Date: 20131101
  Transmission Date: 20140711
  Serious: No
  Sender: FDA-Public Use
  Company Number: US-SAVIENT-2012S1000045

PATIENT
  Age: 69 Year
  Sex: Male
  Weight: 56.7 kg

DRUGS (9)
  1. KRYSTEXXA INJECTION [Suspect]
     Indication: GOUT
     Route: 042
     Dates: start: 20120425, end: 20120425
  2. KRYSTEXXA INJECTION [Suspect]
     Indication: GOUT
     Route: 042
     Dates: start: 20120605, end: 20120605
  3. LOTREL [Concomitant]
     Indication: PULMONARY HYPERTENSION
     Dates: start: 1997
  4. CELEBREX [Concomitant]
     Indication: GOUT
     Dates: start: 1997
  5. ATENOLOL [Concomitant]
     Indication: TACHYCARDIA
     Dates: start: 2009
  6. BENADRYL /00000402/ [Concomitant]
     Indication: PREMEDICATION
     Dates: start: 20120425, end: 20120425
  7. BENADRYL /00000402/ [Concomitant]
     Indication: PREMEDICATION
     Dates: start: 20120605, end: 20120605
  8. KENALOG [Concomitant]
     Indication: PREMEDICATION
     Dates: start: 20120425, end: 20120425
  9. KENALOG [Concomitant]
     Indication: PREMEDICATION
     Dates: start: 20120605, end: 20120605

REACTIONS (1)
  - Gout [Recovered/Resolved]
